FAERS Safety Report 10709612 (Version 1)
Quarter: 2015Q1

REPORT INFORMATION
  Report Type: Spontaneous
  Country: US (occurrence: None)
  Receive Date: 20150113
  Receipt Date: 20150113
  Transmission Date: 20150721
  Serious: Yes (Other)
  Sender: FDA-Public Use
  Company Number: None

PATIENT
  Age: 25 Year
  Sex: Female

DRUGS (4)
  1. TASIGNA [Concomitant]
     Active Substance: NILOTINIB
  2. SPRYCEL [Suspect]
     Active Substance: DASATINIB
     Indication: CHRONIC MYELOID LEUKAEMIA
     Dosage: 2 TABLETS, QD ORAL.
     Route: 048
     Dates: start: 20141219, end: 20150112
  3. NONE [Concomitant]
     Active Substance: UNSPECIFIED INGREDIENT
  4. TASIGNA [Suspect]
     Active Substance: NILOTINIB
     Indication: CHRONIC MYELOID LEUKAEMIA
     Dosage: 2 TABS QD, ORAL.
     Route: 048
     Dates: start: 20141201, end: 20141219

REACTIONS (2)
  - Thrombocytopenia [None]
  - Neutropenia [None]

NARRATIVE: CASE EVENT DATE: 20141219
